FAERS Safety Report 19570045 (Version 1)
Quarter: 2021Q3

REPORT INFORMATION
  Report Type: Report from Study
  Country: CO (occurrence: CO)
  Receive Date: 20210715
  Receipt Date: 20210715
  Transmission Date: 20211014
  Serious: Yes (Death, Other)
  Sender: FDA-Public Use
  Company Number: CO-BAYER-2020-223816

PATIENT
  Age: 73 Year
  Sex: Female

DRUGS (1)
  1. NEXAVAR [Suspect]
     Active Substance: SORAFENIB
     Indication: THYROID CANCER
     Dosage: DAILY DOSE 800 MG
     Route: 048
     Dates: start: 20200921, end: 20210706

REACTIONS (4)
  - Cardiac arrest [Fatal]
  - Pain of skin [Not Recovered/Not Resolved]
  - Skin exfoliation [None]
  - Post procedural haemorrhage [Fatal]

NARRATIVE: CASE EVENT DATE: 20201009
